FAERS Safety Report 17275255 (Version 1)
Quarter: 2020Q1

REPORT INFORMATION
  Report Type: Spontaneous
  Country: IT (occurrence: IT)
  Receive Date: 20200116
  Receipt Date: 20200116
  Transmission Date: 20200409
  Serious: Yes (Death, Other)
  Sender: FDA-Public Use
  Company Number: IT-TEVA-2020-IT-1168562

PATIENT
  Age: 63 Year
  Sex: Female

DRUGS (4)
  1. PACLITAXEL. [Suspect]
     Active Substance: PACLITAXEL
     Indication: OVARIAN EPITHELIAL CANCER
     Dosage: SIX CYCLES OF NEO-ADJUVANT CHEMOTHERAPY
     Route: 065
  2. CARBOPLATIN. [Suspect]
     Active Substance: CARBOPLATIN
     Indication: OVARIAN EPITHELIAL CANCER
     Dosage: FOUR CYCLES OF NEO-ADJUVANT CHEMOTHERAPY; ONLY CARBOPLATIN AUC 5
     Route: 065
  3. CARBOPLATIN. [Suspect]
     Active Substance: CARBOPLATIN
     Dosage: SIX ADDITIONAL CYCLES; AUC 5
     Route: 065
  4. BLEOMYCIN [Concomitant]
     Active Substance: BLEOMYCIN SULFATE
     Indication: OVARIAN EPITHELIAL CANCER
     Dosage: ONCE ADMINISTRATION BEFORE THE SECOND CYCLE OF NEO-ADJUVANT...
     Route: 034

REACTIONS (4)
  - Drug resistance [Unknown]
  - Alopecia [Unknown]
  - Neutropenia [Unknown]
  - Fatigue [Unknown]
